FAERS Safety Report 9498455 (Version 1)
Quarter: 2013Q3

REPORT INFORMATION
  Report Type: Spontaneous
  Country: US (occurrence: None)
  Receive Date: 20130903
  Receipt Date: 20130903
  Transmission Date: 20140515
  Serious: No
  Sender: FDA-Public Use
  Company Number: None

PATIENT
  Age: 23 Year
  Sex: Female

DRUGS (1)
  1. MAKENA [Suspect]
     Dosage: INJECT 1 ML (250 MG) INTRAMUSCULARY ONCE EVERY WEEK PREG-W/RX PRETERM TO OF INJECTED BY A LABOR LICENSED
     Route: 030
     Dates: start: 20130705, end: 20130819

REACTIONS (1)
  - Thrombosis [None]
